FAERS Safety Report 25634741 (Version 1)
Quarter: 2025Q3

REPORT INFORMATION
  Report Type: Report from Study
  Country: RU (occurrence: RU)
  Receive Date: 20250801
  Receipt Date: 20250801
  Transmission Date: 20251020
  Serious: Yes (Other)
  Sender: ALEXION PHARMACEUTICALS
  Company Number: RU-AstraZeneca-CH-00905262A

PATIENT
  Age: 9 Year
  Sex: Male
  Weight: 15 kg

DRUGS (3)
  1. SELUMETINIB [Suspect]
     Active Substance: SELUMETINIB
     Indication: Neurofibroma
  2. SELUMETINIB [Suspect]
     Active Substance: SELUMETINIB
     Dosage: 50 MILLIGRAM, BID (30 MG MORNING, 20 MG EVENING)
     Dates: start: 20250521
  3. CHOLECALCIFEROL [Concomitant]
     Active Substance: CHOLECALCIFEROL
     Dosage: 4 DROP, QD
     Route: 065
     Dates: start: 20250521, end: 20250603

REACTIONS (14)
  - Electrocardiogram QT shortened [Unknown]
  - Paronychia [Recovered/Resolved]
  - Dry skin [Recovered/Resolved]
  - Seborrhoeic dermatitis [Recovered/Resolved]
  - Bone density decreased [Unknown]
  - Duodenitis [Unknown]
  - Blood parathyroid hormone increased [Unknown]
  - Tri-iodothyronine free decreased [Unknown]
  - Defect conduction intraventricular [Unknown]
  - Pancreatic disorder [Unknown]
  - Product supply issue [Unknown]
  - Neurosis [Unknown]
  - Left ventricular false tendon [Unknown]
  - Dermatitis atopic [Unknown]

NARRATIVE: CASE EVENT DATE: 20250101
